FAERS Safety Report 8414959-9 (Version None)
Quarter: 2012Q2

REPORT INFORMATION
  Report Type: 
  Country: None (occurrence: None)
  Receive Date: 20120606
  Receipt Date: 20120531
  Transmission Date: 20120825
  Serious: Yes (Death, Hospitalization)
  Sender: FDA-Public Use
  Company Number: BR-SHIRE-ALL1-2012-02739

PATIENT
  Sex: Male

DRUGS (1)
  1. MESALAMINE [Suspect]
     Indication: PROCTITIS ULCERATIVE
     Dosage: UNK, UNKNOWN
     Route: 048
     Dates: start: 20110101, end: 20120501

REACTIONS (2)
  - ABDOMINAL PAIN [None]
  - GASTROINTESTINAL NECROSIS [None]
